FAERS Safety Report 4638162-3 (Version None)
Quarter: 2005Q2

REPORT INFORMATION
  Report Type: 
  Country: None (occurrence: None)
  Receive Date: 20050415
  Receipt Date: 20050323
  Transmission Date: 20051028
  Serious: Yes (Hospitalization, Other)
  Sender: FDA-Public Use
  Company Number: USA050289604

PATIENT
  Age: 40 Year
  Sex: Female

DRUGS (11)
  1. ZYPREXA [Suspect]
     Dosage: 30 MG DAY
  2. PAXIL [Concomitant]
  3. TOPAMAX [Concomitant]
  4. XANAX (ALPRAZOLAM DUM) [Concomitant]
  5. VICODIN [Concomitant]
  6. RESTORIL [Concomitant]
  7. LIPITOR [Concomitant]
  8. LORTAB [Concomitant]
  9. KEPPRA [Concomitant]
  10. ZONEGRAN [Concomitant]
  11. CORGARD [Concomitant]

REACTIONS (1)
  - DEEP VEIN THROMBOSIS [None]
